FAERS Safety Report 5153620-3 (Version None)
Quarter: 2006Q4

REPORT INFORMATION
  Report Type: 
  Country: None (occurrence: None)
  Receive Date: 20061113
  Receipt Date: 20061030
  Transmission Date: 20070319
  Serious: Yes (Other)
  Sender: FDA-Public Use
  Company Number: 2006135591

PATIENT
  Age: 86 Year
  Sex: Male

DRUGS (3)
  1. PIROXICAM [Suspect]
  2. ASPIRIN [Suspect]
  3. DIPYRIDAMOLE [Suspect]
     Dosage: ORAL
     Route: 048

REACTIONS (4)
  - DRUG INTERACTION [None]
  - OPERATIVE HAEMORRHAGE [None]
  - PLATELET FUNCTION TEST ABNORMAL [None]
  - VITREOUS HAEMORRHAGE [None]
